FAERS Safety Report 17228900 (Version 1)
Quarter: 2020Q1

REPORT INFORMATION
  Report Type: Spontaneous
  Country: GB (occurrence: GB)
  Receive Date: 20200103
  Receipt Date: 20200103
  Transmission Date: 20200409
  Serious: Yes (Other)
  Sender: FDA-Public Use
  Company Number: GB-PFIZER INC-2019561233

PATIENT
  Age: 31 Year
  Sex: Male
  Weight: 70 kg

DRUGS (7)
  1. CHLORAMPHENICOL [Concomitant]
     Active Substance: CHLORAMPHENICOL
     Dosage: 4 GTT, DAILY
     Dates: start: 20191113, end: 20191120
  2. FLUCLOXACILLIN [Concomitant]
     Active Substance: FLUCLOXACILLIN
     Dosage: 4 DF, DAILY
     Dates: start: 20191031, end: 20191107
  3. PREDNISOLONE. [Concomitant]
     Active Substance: PREDNISOLONE
     Dosage: 6 DF, DAILY
     Dates: start: 20191031, end: 20191103
  4. FEXOFENADINE [Concomitant]
     Active Substance: FEXOFENADINE HYDROCHLORIDE
     Dosage: 1 DF, DAILY
     Dates: start: 20191126
  5. BETAMETHASONE VALERATE. [Concomitant]
     Active Substance: BETAMETHASONE VALERATE
     Dosage: 2 DF, DAILY
     Dates: start: 20191126
  6. SERTRALINE HCL [Suspect]
     Active Substance: SERTRALINE HYDROCHLORIDE
     Dosage: 50 MG, DAILY
     Dates: start: 20191025, end: 20191108
  7. LORATADINE. [Concomitant]
     Active Substance: LORATADINE
     Dosage: 1 DF, DAILY
     Dates: start: 20191031, end: 20191114

REACTIONS (3)
  - Rash [Unknown]
  - Scab [Unknown]
  - Stevens-Johnson syndrome [Recovering/Resolving]

NARRATIVE: CASE EVENT DATE: 20191030
